FAERS Safety Report 20219984 (Version 1)
Quarter: 2021Q4

REPORT INFORMATION
  Report Type: Spontaneous
  Country: ES (occurrence: ES)
  Receive Date: 20211222
  Receipt Date: 20211222
  Transmission Date: 20220303
  Serious: Yes (Disabling, Congenital Anomaly, Other)
  Sender: FDA-Public Use
  Company Number: ES-ABBVIE-21K-144-4206461-00

PATIENT

DRUGS (1)
  1. VALPROATE SODIUM [Suspect]
     Active Substance: VALPROATE SODIUM
     Indication: Maternal exposure timing unspecified
     Route: 064

REACTIONS (7)
  - Autism spectrum disorder [Unknown]
  - Disability [Unknown]
  - Renal aplasia [Unknown]
  - Macrocephaly [Unknown]
  - High arched palate [Unknown]
  - Foetal malformation [Unknown]
  - Foetal exposure during pregnancy [Unknown]
